FAERS Safety Report 8131272-8 (Version None)
Quarter: 2012Q1

REPORT INFORMATION
  Report Type: 
  Country: None (occurrence: None)
  Receive Date: 20120213
  Receipt Date: 20120203
  Transmission Date: 20120608
  Serious: Yes (Hospitalization)
  Sender: FDA-Public Use
  Company Number: US-BAYER-2011-066971

PATIENT
  Age: 47 Year
  Sex: Female
  Weight: 74.83 kg

DRUGS (5)
  1. ALBUTEROL [Concomitant]
  2. ADVAIR DISKUS 100/50 [Concomitant]
  3. EFFEXOR [Concomitant]
  4. YAZ [Suspect]
     Dosage: UNK
     Dates: start: 20090821, end: 20090926
  5. BEELITH [Concomitant]

REACTIONS (18)
  - ISCHAEMIC STROKE [None]
  - DEPRESSION [None]
  - CONCUSSION [None]
  - MUSCULAR WEAKNESS [None]
  - BALANCE DISORDER [None]
  - MOBILITY DECREASED [None]
  - BLINDNESS [None]
  - MUSCULOSKELETAL STIFFNESS [None]
  - CEREBRAL THROMBOSIS [None]
  - CONVULSION [None]
  - INJURY [None]
  - PAIN [None]
  - PERONEAL NERVE PALSY [None]
  - EMOTIONAL DISTRESS [None]
  - FEAR [None]
  - ANHEDONIA [None]
  - ANXIETY [None]
  - MUSCLE SPASTICITY [None]
